FAERS Safety Report 18492788 (Version 1)
Quarter: 2020Q4

REPORT INFORMATION
  Report Type: Report from Study
  Country: None (occurrence: CO)
  Receive Date: 20201112
  Receipt Date: 20201112
  Transmission Date: 20210114
  Serious: Yes (Hospitalization, Other)
  Sender: FDA-Public Use
  Company Number: CO-ABBVIE-20K-036-3646306-00

PATIENT
  Age: 45 Year
  Sex: Male

DRUGS (1)
  1. HUMIRA [Suspect]
     Active Substance: ADALIMUMAB
     Indication: HIDRADENITIS
     Route: 058
     Dates: start: 20180725

REACTIONS (8)
  - Pyrexia [Not Recovered/Not Resolved]
  - Blister [Recovered/Resolved]
  - Hidradenitis [Recovered/Resolved]
  - Haemorrhoids [Recovered/Resolved]
  - Haemorrhoids [Not Recovered/Not Resolved]
  - Skin burning sensation [Recovered/Resolved]
  - Urinary tract infection [Recovered/Resolved]
  - Hidradenitis [Not Recovered/Not Resolved]

NARRATIVE: CASE EVENT DATE: 2020
